FAERS Safety Report 16540512 (Version 1)
Quarter: 2019Q3

REPORT INFORMATION
  Report Type: Spontaneous
  Country: US (occurrence: US)
  Receive Date: 20190706
  Receipt Date: 20190706
  Transmission Date: 20191004
  Serious: Yes (Hospitalization, Disabling, Other)
  Sender: FDA-Public Use
  Company Number: None

PATIENT
  Age: 53 Year
  Sex: Female
  Weight: 87.3 kg

DRUGS (2)
  1. VITAMIN D [Concomitant]
     Active Substance: VITAMIN D NOS
  2. LORAZEPAM. [Suspect]
     Active Substance: LORAZEPAM
     Indication: ANXIETY
     Dosage: ?          QUANTITY:1 TABLET(S);?
     Route: 048
     Dates: start: 20110901, end: 20140514

REACTIONS (16)
  - Fatigue [None]
  - Mobility decreased [None]
  - Myalgia [None]
  - Arthralgia [None]
  - Product prescribing issue [None]
  - Muscle atrophy [None]
  - Nervous system injury [None]
  - Headache [None]
  - Back pain [None]
  - Ill-defined disorder [None]
  - Drug withdrawal syndrome [None]
  - Asthenia [None]
  - Nausea [None]
  - Nervous system disorder [None]
  - Disability [None]
  - Neck pain [None]

NARRATIVE: CASE EVENT DATE: 20130201
